FAERS Safety Report 5671401-9 (Version None)
Quarter: 2008Q1

REPORT INFORMATION
  Report Type: 
  Country: None (occurrence: None)
  Receive Date: 20080313
  Receipt Date: 20080226
  Transmission Date: 20080703
  Serious: Yes (Hospitalization)
  Sender: FDA-Public Use
  Company Number: S08-FRA-00893-01

PATIENT
  Age: 89 Year
  Sex: Female

DRUGS (8)
  1. ESCITALOPRAM [Suspect]
     Indication: MAJOR DEPRESSION
     Dosage: 5 MG QD PO
     Route: 048
     Dates: start: 20070901
  2. ENALAPRIL MALEATE [Suspect]
     Indication: HYPERTENSION
     Dosage: 5 MG QD PO
     Route: 048
  3. LYRICA [Suspect]
     Indication: LUMBAR SPINAL STENOSIS
     Dosage: 25 MG QD PO
     Route: 048
     Dates: start: 20070701
  4. LYRICA [Suspect]
     Indication: LUMBAR SPINAL STENOSIS
     Dosage: 1 UNK QD PO
     Route: 048
     Dates: end: 20080115
  5. DURAGESIC-100 [Suspect]
     Indication: BACK PAIN
     Dosage: 50 MCG BIW AP
     Dates: start: 20071115, end: 20080107
  6. FERROUS SULFATE TAB [Suspect]
     Dosage: 80 MG QD PO
     Route: 048
  7. LEVOTHYROXINE SODIUM [Suspect]
     Indication: HYPOTHYROIDISM
     Dosage: 50 MCG QD PO
     Route: 048
  8. FUROSEMIDE [Suspect]
     Indication: HYPERTENSION
     Dosage: 40 MG QD PO
     Route: 048

REACTIONS (14)
  - BLOOD PHOSPHORUS DECREASED [None]
  - CONDITION AGGRAVATED [None]
  - DIARRHOEA [None]
  - DRUG TOXICITY [None]
  - FAECES DISCOLOURED [None]
  - HYPOMAGNESAEMIA [None]
  - MAJOR DEPRESSION [None]
  - MALNUTRITION [None]
  - OVERDOSE [None]
  - PROTEUS INFECTION [None]
  - RADICULAR PAIN [None]
  - RHABDOMYOLYSIS [None]
  - URINARY TRACT INFECTION [None]
  - WHITE BLOOD CELL COUNT INCREASED [None]
